FAERS Safety Report 20152113 (Version 1)
Quarter: 2021Q4

REPORT INFORMATION
  Report Type: Report from Study
  Country: CA (occurrence: CA)
  Receive Date: 20211206
  Receipt Date: 20211206
  Transmission Date: 20220303
  Serious: Yes (Hospitalization, Other)
  Sender: FDA-Public Use
  Company Number: CA-BoehringerIngelheim-2021-BI-140954

PATIENT

DRUGS (1)
  1. JARDIANCE [Suspect]
     Active Substance: EMPAGLIFLOZIN
     Indication: Type 2 diabetes mellitus
     Route: 048

REACTIONS (5)
  - Diabetic ketoacidosis [Unknown]
  - Acute kidney injury [Unknown]
  - Glomerular filtration rate decreased [Unknown]
  - Feeling abnormal [Unknown]
  - Diet refusal [Unknown]
